FAERS Safety Report 8236272-5 (Version None)
Quarter: 2012Q1

REPORT INFORMATION
  Report Type: 
  Country: None (occurrence: None)
  Receive Date: 20120309
  Receipt Date: 20110714
  Transmission Date: 20120608
  Serious: Yes (Hospitalization)
  Sender: FDA-Public Use
  Company Number: PHHY2011US64378

PATIENT
  Age: 26 Year
  Sex: Female
  Weight: 58 kg

DRUGS (5)
  1. MODAFINIL [Concomitant]
  2. INTERFERON BETA-1B [Suspect]
     Dosage: SUBCUTANEOUS
     Route: 058
  3. GLATIRAMER ACETATE (GLATIRAMER ACETATE) [Concomitant]
  4. NATALIZUMAB (NATALIZUMAB) [Concomitant]
  5. INTERFERON BETA-1A (INTERFERON BETA-1A) INJECTION [Concomitant]

REACTIONS (1)
  - MATERNAL EXPOSURE DURING PREGNANCY [None]
